FAERS Safety Report 8610775-3 (Version None)
Quarter: 2012Q3

REPORT INFORMATION
  Report Type: 
  Country: None (occurrence: None)
  Receive Date: 20120423
  Receipt Date: 20090908
  Transmission Date: 20120928
  Serious: Yes (Other)
  Sender: FDA-Public Use
  Company Number: PHEH2009US06205

PATIENT
  Age: 69 Year
  Sex: Female

DRUGS (1)
  1. FEMARA [Suspect]
     Dosage: 2.5 MG, QD, ORAL
     Route: 048
     Dates: start: 20080814

REACTIONS (5)
  - WEIGHT DECREASED [None]
  - HOT FLUSH [None]
  - INSOMNIA [None]
  - NIGHT SWEATS [None]
  - DEPRESSION [None]
